FAERS Safety Report 8964960 (Version 2)
Quarter: 2013Q1

REPORT INFORMATION
  Report Type: Report from Study
  Country: FR (occurrence: FR)
  Receive Date: 20121213
  Receipt Date: 20130208
  Transmission Date: 20140127
  Serious: Yes (Life-Threatening, Hospitalization)
  Sender: FDA-Public Use
  Company Number: FR-ROCHE-1164000

PATIENT
  Age: 89 Year
  Sex: Female
  Weight: 68 kg

DRUGS (5)
  1. VISMODEGIB [Suspect]
     Indication: HEAD AND NECK CANCER
     Dosage: LAST DOSE PRIOR TO SAE WAS 27/NOV/2012
     Route: 048
     Dates: start: 20121102
  2. LOVENOX [Concomitant]
     Indication: PULMONARY EMBOLISM
     Route: 065
     Dates: start: 20121129, end: 20121202
  3. COUMADINE [Concomitant]
     Indication: PULMONARY EMBOLISM
     Route: 065
     Dates: start: 20121203
  4. FUNGIZONE [Concomitant]
     Indication: ORAL FUNGAL INFECTION
     Route: 065
     Dates: start: 20130103
  5. ISUPREL [Concomitant]
     Route: 042
     Dates: start: 20130103, end: 20130103

REACTIONS (2)
  - Myocardial infarction [Not Recovered/Not Resolved]
  - Pulmonary embolism [Not Recovered/Not Resolved]
